FAERS Safety Report 15148161 (Version 1)
Quarter: 2018Q3

REPORT INFORMATION
  Report Type: Spontaneous
  Country: SE (occurrence: SE)
  Receive Date: 20180716
  Receipt Date: 20180716
  Transmission Date: 20181010
  Serious: Yes (Hospitalization)
  Sender: FDA-Public Use
  Company Number: SE-PURDUE PHARMA-GBR-2018-0057361

PATIENT
  Age: 90 Year
  Sex: Female

DRUGS (11)
  1. CILAXORAL [Concomitant]
     Active Substance: SODIUM PICOSULFATE
     Dosage: 1 AS NEEDED
  2. OXYCONTIN [Suspect]
     Active Substance: OXYCODONE HYDROCHLORIDE
     Dosage: (STRENGTH 15 MG)DOSERING 3+2
     Route: 048
     Dates: start: 20171012, end: 20180309
  3. GABAPENTIN. [Concomitant]
     Active Substance: GABAPENTIN
  4. OXASCAND [Concomitant]
     Active Substance: OXAZEPAM
     Dosage: AS NEEDED
  5. IMDUR [Concomitant]
     Active Substance: ISOSORBIDE MONONITRATE
  6. NITROLINGUAL [Concomitant]
     Active Substance: NITROGLYCERIN
     Dosage: AS NEEDED
  7. CANODERM [Concomitant]
     Dosage: AS NEEDED
  8. METOPROLOL. [Concomitant]
     Active Substance: METOPROLOL
  9. OXYCONTIN [Suspect]
     Active Substance: OXYCODONE HYDROCHLORIDE
     Indication: PAIN
     Dosage: (STRENGTH 10 MG) DOSERING 3+2
     Route: 048
     Dates: start: 20171012, end: 20180309
  10. TROMBYL [Concomitant]
     Active Substance: ASPIRIN
  11. SIMVASTATIN. [Concomitant]
     Active Substance: SIMVASTATIN

REACTIONS (1)
  - Fall [Not Recovered/Not Resolved]

NARRATIVE: CASE EVENT DATE: 20180309
